FAERS Safety Report 10142611 (Version 1)
Quarter: 2014Q2

REPORT INFORMATION
  Report Type: Spontaneous
  Country: US (occurrence: None)
  Receive Date: 20140428
  Receipt Date: 20140428
  Transmission Date: 20141212
  Serious: Yes (Life-Threatening, Hospitalization)
  Sender: FDA-Public Use
  Company Number: None

PATIENT
  Age: 52 Year
  Sex: Male

DRUGS (1)
  1. TEMODAR [Suspect]
     Indication: BRAIN NEOPLASM MALIGNANT
     Dosage: 1 CAPSULE DAILY FOR 5 DAYS, ORAL
     Route: 048
     Dates: start: 20140210, end: 20140425

REACTIONS (3)
  - Cerebrovascular accident [None]
  - Upper respiratory tract infection [None]
  - Chest pain [None]
